FAERS Safety Report 10704921 (Version 1)
Quarter: 2015Q1

REPORT INFORMATION
  Report Type: Spontaneous
  Country: US (occurrence: None)
  Receive Date: 20150109
  Receipt Date: 20150109
  Transmission Date: 20150721
  Serious: Yes (Hospitalization)
  Sender: FDA-Public Use
  Company Number: None

PATIENT
  Age: 67 Year
  Sex: Female
  Weight: 73.7 kg

DRUGS (17)
  1. CYTARABINE. [Suspect]
     Active Substance: CYTARABINE
     Dosage: GIVEN ON DAY 1 OF INDUCTION
     Dates: end: 20141226
  2. DEXAMETHASONE. [Suspect]
     Active Substance: DEXAMETHASONE
     Dosage: GIVEN DAILY, FROM DAY 1-7
     Dates: end: 20150101
  3. SUCRALFATE. [Concomitant]
     Active Substance: SUCRALFATE
  4. FLUCONAZOLE. [Concomitant]
     Active Substance: FLUCONAZOLE
  5. PANTOPRAZOLE [Concomitant]
     Active Substance: PANTOPRAZOLE SODIUM
  6. DAUNORUBICIN [Suspect]
     Active Substance: DAUNORUBICIN
     Dosage: GIVEN ON DAY 1 AND 8 FOR THIS COURSE
     Dates: end: 20150102
  7. VINCRISTINE SULFATE. [Suspect]
     Active Substance: VINCRISTINE SULFATE
     Dosage: GIVEN ON DAY 1 AND 8
     Dates: end: 20150102
  8. ALUMINUM-MAGNESIUM WITH SIMETHICONE [Concomitant]
  9. NEUPOGEN [Concomitant]
     Active Substance: FILGRASTIM
  10. ALPRAZOLAM. [Concomitant]
     Active Substance: ALPRAZOLAM
  11. SENOKOT-S [Concomitant]
     Active Substance: DOCUSATE SODIUM\SENNOSIDES
  12. TRAMADOL [Concomitant]
     Active Substance: TRAMADOL
  13. ACYCLOVIR. [Concomitant]
     Active Substance: ACYCLOVIR
  14. CALCIUM ACETATE. [Concomitant]
     Active Substance: CALCIUM ACETATE
  15. MIRALAX [Concomitant]
     Active Substance: POLYETHYLENE GLYCOL 3350
  16. ALLOPURINOL. [Concomitant]
     Active Substance: ALLOPURINOL
  17. SULFAMETHOXAZOLE WITH TRIMETHOPRIM-BACTRIM [Concomitant]

REACTIONS (6)
  - Palpitations [None]
  - Abdominal pain upper [None]
  - Unresponsive to stimuli [None]
  - Hyperhidrosis [None]
  - Loss of consciousness [None]
  - Anxiety [None]

NARRATIVE: CASE EVENT DATE: 20150104
